FAERS Safety Report 6690811-4 (Version None)
Quarter: 2010Q2

REPORT INFORMATION
  Report Type: 
  Country: None (occurrence: None)
  Receive Date: 20100421
  Receipt Date: 20100412
  Transmission Date: 20101027
  Serious: Yes (Hospitalization)
  Sender: FDA-Public Use
  Company Number: GB-CEPHALON-2010002092

PATIENT
  Sex: Female

DRUGS (2)
  1. TRISENOX [Suspect]
     Indication: ACUTE MYELOID LEUKAEMIA
     Dates: start: 20091110, end: 20100226
  2. TRISENOX [Suspect]
     Indication: MYELODYSPLASTIC SYNDROME

REACTIONS (1)
  - PERICARDITIS [None]
